FAERS Safety Report 9308071 (Version 2)
Quarter: 2013Q2

REPORT INFORMATION
  Report Type: Spontaneous
  Country: PH (occurrence: PH)
  Receive Date: 20130524
  Receipt Date: 20130530
  Transmission Date: 20140414
  Serious: Yes (Death)
  Sender: FDA-Public Use
  Company Number: PH-009507513-1305PHL012874

PATIENT
  Age: 80 Year
  Sex: Female

DRUGS (1)
  1. JANUMET [Suspect]
     Dosage: TWO TABLETS, TWICE A DAY
     Route: 048
     Dates: end: 20130318

REACTIONS (2)
  - Diabetic complication [Fatal]
  - Overdose [Unknown]
